FAERS Safety Report 6441030-8 (Version None)
Quarter: 2009Q4

REPORT INFORMATION
  Report Type: 
  Country: None (occurrence: None)
  Receive Date: 20091102
  Receipt Date: 20080204
  Transmission Date: 20100525
  Serious: Yes (Other)
  Sender: FDA-Public Use
  Company Number: CART-10486

PATIENT
  Sex: Female

DRUGS (1)
  1. CARTICEL [Suspect]
     Indication: ARTHROPATHY
     Dosage: NA, ONCE, OTHER
     Route: 050
     Dates: start: 20051122, end: 20051122

REACTIONS (2)
  - OSTEOARTHRITIS [None]
  - TREATMENT FAILURE [None]
